FAERS Safety Report 13980416 (Version 2)
Quarter: 2020Q2

REPORT INFORMATION
  Report Type: Spontaneous
  Country: TW (occurrence: TW)
  Receive Date: 20170918
  Receipt Date: 20200622
  Transmission Date: 20200713
  Serious: Yes (Death, Hospitalization, Other)
  Sender: FDA-Public Use
  Company Number: TW-BRISTOL-MYERS SQUIBB COMPANY-BMS-2017-081906

PATIENT
  Age: 64 Year
  Sex: Male
  Weight: 53.6 kg

DRUGS (1)
  1. OPDIVO [Suspect]
     Active Substance: NIVOLUMAB
     Indication: GINGIVAL CANCER
     Dosage: 3 MG/KG, Q2WK
     Route: 042
     Dates: start: 20170830, end: 20170830

REACTIONS (3)
  - Obstructive airways disorder [Fatal]
  - Tumour haemorrhage [Fatal]
  - Intentional product use issue [Unknown]

NARRATIVE: CASE EVENT DATE: 20170905
